FAERS Safety Report 11263586 (Version 1)
Quarter: 2015Q3

REPORT INFORMATION
  Report Type: Spontaneous
  Country: CA (occurrence: CA)
  Receive Date: 20150713
  Receipt Date: 20150713
  Transmission Date: 20151125
  Serious: Yes (Other)
  Sender: FDA-Public Use
  Company Number: CA-HOSPIRA-2929214

PATIENT
  Age: 51 Year
  Sex: Female

DRUGS (5)
  1. PREDNISOLONE. [Suspect]
     Active Substance: PREDNISOLONE
     Indication: PRODUCT USED FOR UNKNOWN INDICATION
     Route: 065
  2. ENBREL [Suspect]
     Active Substance: ETANERCEPT
     Indication: RHEUMATOID ARTHRITIS
     Route: 058
  3. FOLIC ACID. [Concomitant]
     Active Substance: FOLIC ACID
     Indication: PRODUCT USED FOR UNKNOWN INDICATION
  4. METHOTREXATE [Suspect]
     Active Substance: METHOTREXATE
     Indication: PRODUCT USED FOR UNKNOWN INDICATION
     Route: 065
  5. NEXIUM [Suspect]
     Active Substance: ESOMEPRAZOLE MAGNESIUM
     Indication: PRODUCT USED FOR UNKNOWN INDICATION
     Route: 065

REACTIONS (16)
  - Arthritis [Unknown]
  - Paraesthesia [Unknown]
  - Rhinorrhoea [Unknown]
  - Nausea [Unknown]
  - Neck pain [Unknown]
  - Pain in extremity [Unknown]
  - Abdominal pain upper [Unknown]
  - Anxiety [Unknown]
  - Pain [Unknown]
  - Joint injury [Unknown]
  - Headache [Unknown]
  - Drug ineffective [Unknown]
  - Fall [Unknown]
  - Joint swelling [Unknown]
  - Muscle strain [Unknown]
  - Upper-airway cough syndrome [Unknown]
